FAERS Safety Report 8885885 (Version 1)
Quarter: 2012Q4

REPORT INFORMATION
  Report Type: 
  Country: US (occurrence: US)
  Receive Date: 20121102
  Receipt Date: 20121102
  Transmission Date: 20130627
  Serious: Yes (Other)
  Sender: FDA-Public Use
  Company Number: US-JNJFOC-20121016937

PATIENT

DRUGS (2)
  1. ROGAINE UNSPECIFIED INGREDIENT [Suspect]
     Route: 065
  2. ROGAINE UNSPECIFIED INGREDIENT [Suspect]
     Indication: PRODUCT USED FOR UNKNOWN INDICATION
     Route: 065
     Dates: start: 2011

REACTIONS (4)
  - Eye disorder [Unknown]
  - Accidental exposure to product [Unknown]
  - Headache [Unknown]
  - Incorrect route of drug administration [None]
